FAERS Safety Report 6495273-8 (Version None)
Quarter: 2009Q4

REPORT INFORMATION
  Report Type: 
  Country: None (occurrence: None)
  Receive Date: 20091214
  Receipt Date: 20090929
  Transmission Date: 20100525
  Serious: Yes (Hospitalization)
  Sender: FDA-Public Use
  Company Number: US-PFIZER INC-2008086970

PATIENT
  Sex: Male
  Weight: 102.95 kg

DRUGS (9)
  1. SILDENAFIL CITRATE [Suspect]
     Indication: PULMONARY HYPERTENSION
     Dosage: BLINDED DOSE, TID
     Route: 048
     Dates: start: 20080708, end: 20080929
  2. SILDENAFIL CITRATE [Suspect]
     Dosage: 20 MG, 3X/DAY
     Route: 048
     Dates: start: 20080929, end: 20081018
  3. CRESTOR [Concomitant]
     Route: 048
     Dates: start: 20080301
  4. ALPRAZOLAM [Concomitant]
     Route: 048
     Dates: start: 20080301
  5. TORSEMIDE [Concomitant]
     Route: 048
     Dates: start: 20080301
  6. DIOVAN HCT [Concomitant]
     Route: 048
     Dates: start: 19930101
  7. LEVOTHYROXINE SODIUM [Concomitant]
     Route: 048
     Dates: start: 20080301
  8. SPIRONOLACTONE [Concomitant]
     Route: 048
     Dates: start: 20080424
  9. DILANTIN [Concomitant]
     Route: 048
     Dates: start: 20000101

REACTIONS (2)
  - PULMONARY HYPERTENSION [None]
  - SUPRAVENTRICULAR TACHYCARDIA [None]
